FAERS Safety Report 5828624-5 (Version None)
Quarter: 2008Q3

REPORT INFORMATION
  Report Type: 
  Country: None (occurrence: None)
  Receive Date: 20080731
  Receipt Date: 20080721
  Transmission Date: 20090109
  Serious: Yes (Hospitalization)
  Sender: FDA-Public Use
  Company Number: A0740364A

PATIENT
  Age: 44 Year
  Sex: Male

DRUGS (3)
  1. PAROXETINE HCL [Suspect]
     Indication: DEPRESSION
     Route: 048
  2. WELLBUTRIN [Concomitant]
     Indication: DEPRESSION
     Route: 048
  3. LITHIUM [Concomitant]
     Indication: DEPRESSION
     Route: 048

REACTIONS (3)
  - CONDITION AGGRAVATED [None]
  - SUICIDAL IDEATION [None]
  - THERAPEUTIC RESPONSE UNEXPECTED WITH DRUG SUBSTITUTION [None]
